FAERS Safety Report 20358930 (Version 2)
Quarter: 2022Q2

REPORT INFORMATION
  Report Type: Report from Study
  Country: US (occurrence: US)
  Receive Date: 20220120
  Receipt Date: 20220407
  Transmission Date: 20220721
  Serious: Yes (Hospitalization, Other)
  Sender: FDA-Public Use
  Company Number: US-ABBVIE-22K-163-4238466-00

PATIENT
  Age: 65 Year
  Sex: Male
  Weight: 108.96 kg

DRUGS (2)
  1. SKYRIZI [Suspect]
     Active Substance: RISANKIZUMAB-RZAA
     Indication: Psoriasis
     Route: 058
     Dates: start: 202104, end: 2021
  2. SKYRIZI [Suspect]
     Active Substance: RISANKIZUMAB-RZAA
     Route: 058
     Dates: start: 2021

REACTIONS (6)
  - Knee arthroplasty [Recovering/Resolving]
  - Skin disorder [Not Recovered/Not Resolved]
  - Chondropathy [Not Recovered/Not Resolved]
  - Haemorrhage [Recovered/Resolved]
  - Gastrointestinal injury [Recovered/Resolved]
  - Injection site bruising [Recovered/Resolved]

NARRATIVE: CASE EVENT DATE: 20210601
